FAERS Safety Report 10068032 (Version 1)
Quarter: 2014Q2

REPORT INFORMATION
  Report Type: Spontaneous
  Country: GR (occurrence: GR)
  Receive Date: 20140409
  Receipt Date: 20140409
  Transmission Date: 20141212
  Serious: Yes (Other)
  Sender: FDA-Public Use
  Company Number: GR-AMGEN-GRCSP2014024000

PATIENT
  Sex: Male

DRUGS (2)
  1. MIMPARA [Suspect]
     Indication: PARATHYROID TUMOUR BENIGN
     Dosage: UNK
     Route: 065
     Dates: start: 201311
  2. MIMPARA [Suspect]
     Indication: HYPERPARATHYROIDISM PRIMARY

REACTIONS (1)
  - Gamma-glutamyltransferase increased [Not Recovered/Not Resolved]
